FAERS Safety Report 9426822 (Version 1)
Quarter: 2013Q3

REPORT INFORMATION
  Report Type: Spontaneous
  Country: US (occurrence: US)
  Receive Date: 20130730
  Receipt Date: 20130730
  Transmission Date: 20140515
  Serious: No
  Sender: FDA-Public Use
  Company Number: US-SANOFI-AVENTIS-2012SA091821

PATIENT
  Sex: Female

DRUGS (1)
  1. AMBIEN CR [Suspect]
     Indication: SLEEP DISORDER
     Dosage: PRODUCT START DATE: OVER ONE YEAR AGO
     Route: 048
     Dates: start: 2011

REACTIONS (7)
  - Coeliac disease [Unknown]
  - Nightmare [Unknown]
  - Balance disorder [Unknown]
  - Insomnia [Unknown]
  - Tremor [Unknown]
  - Therapeutic response unexpected [Unknown]
  - Incorrect drug administration duration [Unknown]
